FAERS Safety Report 23272617 (Version 1)
Quarter: 2023Q4

REPORT INFORMATION
  Report Type: Spontaneous
  Country: None (occurrence: GB)
  Receive Date: 20231207
  Receipt Date: 20231207
  Transmission Date: 20240110
  Serious: Yes (Other)
  Sender: FDA-Public Use
  Company Number: GB-B.Braun Medical Inc.-2149093

PATIENT
  Age: 62 Year
  Sex: Female
  Weight: 48 kg

DRUGS (2)
  1. METRONIDAZOLE [Suspect]
     Active Substance: METRONIDAZOLE
  2. MEBEVERINE HYDROCHLORIDE [Concomitant]
     Active Substance: MEBEVERINE HYDROCHLORIDE

REACTIONS (2)
  - Dizziness [None]
  - Malaise [None]
